FAERS Safety Report 5143344-0 (Version None)
Quarter: 2006Q4

REPORT INFORMATION
  Report Type: 
  Country: None (occurrence: None)
  Receive Date: 20061030
  Receipt Date: 20061017
  Transmission Date: 20070319
  Serious: Yes (Death, Other)
  Sender: FDA-Public Use
  Company Number: 2006104786

PATIENT
  Age: 66 Year
  Sex: Male

DRUGS (13)
  1. ZYVOX [Suspect]
     Indication: STAPHYLOCOCCAL SEPSIS
     Dosage: 1200 MG (600 MG, FREQUENCY:  BID), INTRAVENOUS
     Route: 042
     Dates: start: 20060529, end: 20060615
  2. ZYVOX [Suspect]
     Indication: STAPHYLOCOCCAL SEPSIS
     Dosage: 1200 MG (600 MG, 1 IN 2 D), ORAL
     Route: 048
     Dates: start: 20060616, end: 20060718
  3. VANCOMYCIN [Concomitant]
  4. MEROPEN (MEROPENEM) [Concomitant]
  5. MAXIPIME [Concomitant]
  6. SULBACTAM SODIUM (SULBACTAM) [Concomitant]
  7. LAFUTIDINE (LAFUTIDINE) [Concomitant]
  8. LANIRAPID (METILDIGOXIN) [Concomitant]
  9. WARFARIN SODIUM [Concomitant]
  10. CARVEDILOL [Concomitant]
  11. RISPERDAL [Concomitant]
  12. ANTHROBIN P (ANTITHROMBIN III) [Concomitant]
  13. HANP (CARPERITIDE) [Concomitant]

REACTIONS (9)
  - AORTIC VALVE INCOMPETENCE [None]
  - BLOOD CULTURE POSITIVE [None]
  - CARDIAC FAILURE [None]
  - DISSEMINATED INTRAVASCULAR COAGULATION [None]
  - ENDOCARDITIS [None]
  - HEPATITIS [None]
  - PATHOGEN RESISTANCE [None]
  - PLATELET COUNT DECREASED [None]
  - PSEUDOMONAS INFECTION [None]
